FAERS Safety Report 16839192 (Version 1)
Quarter: 2019Q4

REPORT INFORMATION
  Report Type: Spontaneous
  Country: US (occurrence: US)
  Receive Date: 20190920
  Receipt Date: 20190920
  Transmission Date: 20200122
  Serious: No
  Sender: FDA-Public Use
  Company Number: None

PATIENT

DRUGS (1)
  1. ALBUTEROL 1.25MG/ 3 CCC [Suspect]
     Active Substance: ALBUTEROL

REACTIONS (2)
  - Chest pain [None]
  - Tremor [None]
